FAERS Safety Report 17446072 (Version 1)
Quarter: 2020Q1

REPORT INFORMATION
  Report Type: Spontaneous
  Country: US (occurrence: US)
  Receive Date: 20200221
  Receipt Date: 20200221
  Transmission Date: 20200409
  Serious: No
  Sender: FDA-Public Use
  Company Number: US-SA-2020SA046387

PATIENT
  Age: 58 Year
  Sex: Female

DRUGS (8)
  1. ATORVASTATIN [Concomitant]
     Active Substance: ATORVASTATIN
  2. METOPROLOL. [Concomitant]
     Active Substance: METOPROLOL
  3. DUPIXENT [Suspect]
     Active Substance: DUPILUMAB
     Indication: DERMATITIS ATOPIC
     Dosage: 300 MG, QOW
     Route: 058
     Dates: start: 20190626
  4. CELECOXIB. [Concomitant]
     Active Substance: CELECOXIB
  5. CLOPIDOGREL [Concomitant]
     Active Substance: CLOPIDOGREL BISULFATE
  6. METAXALONE. [Concomitant]
     Active Substance: METAXALONE
  7. CHLORTHALIDON [Concomitant]
     Active Substance: CHLORTHALIDONE
  8. SERTRALINE [Concomitant]
     Active Substance: SERTRALINE HYDROCHLORIDE

REACTIONS (1)
  - Eczema [Not Recovered/Not Resolved]

NARRATIVE: CASE EVENT DATE: 20200210
